FAERS Safety Report 10498809 (Version 7)
Quarter: 2015Q2

REPORT INFORMATION
  Report Type: Report from Study
  Country: US (occurrence: US)
  Receive Date: 20141006
  Receipt Date: 20150406
  Transmission Date: 20150821
  Serious: Yes (Other)
  Sender: FDA-Public Use
  Company Number: US-ABBVIE-14P-163-1289166-00

PATIENT
  Age: 53 Year
  Sex: Female

DRUGS (34)
  1. LANTUS [Concomitant]
     Active Substance: INSULIN GLARGINE
     Route: 058
     Dates: start: 20130101, end: 20131115
  2. METFORMIN [Concomitant]
     Active Substance: METFORMIN HYDROCHLORIDE
     Indication: TYPE 2 DIABETES MELLITUS
     Route: 048
     Dates: start: 201004, end: 201207
  3. METFORMIN [Concomitant]
     Active Substance: METFORMIN HYDROCHLORIDE
     Route: 048
     Dates: start: 20131102, end: 20140301
  4. HUMIRA [Suspect]
     Active Substance: ADALIMUMAB
     Indication: UVEITIS
     Route: 058
     Dates: start: 20120719
  5. LANTUS [Concomitant]
     Active Substance: INSULIN GLARGINE
     Indication: TYPE 2 DIABETES MELLITUS
     Route: 058
     Dates: start: 20120618, end: 201209
  6. METFORMIN [Concomitant]
     Active Substance: METFORMIN HYDROCHLORIDE
     Indication: DIABETES MELLITUS
     Route: 048
     Dates: start: 201207, end: 20130829
  7. QSYMIA [Concomitant]
     Active Substance: PHENTERMINE HYDROCHLORIDE\TOPIRAMATE
     Route: 048
     Dates: start: 20140827
  8. HYCET [Concomitant]
     Active Substance: ACETAMINOPHEN\HYDROCODONE BITARTRATE
     Indication: PROCEDURAL PAIN
     Route: 048
     Dates: start: 20140803, end: 20140816
  9. LANTUS [Concomitant]
     Active Substance: INSULIN GLARGINE
     Route: 058
     Dates: start: 201209, end: 20121231
  10. LANTUS [Concomitant]
     Active Substance: INSULIN GLARGINE
     Route: 058
     Dates: start: 20140803
  11. METFORMIN [Concomitant]
     Active Substance: METFORMIN HYDROCHLORIDE
     Route: 048
     Dates: start: 20140302, end: 20140803
  12. QSYMIA [Concomitant]
     Active Substance: PHENTERMINE HYDROCHLORIDE\TOPIRAMATE
     Route: 048
     Dates: start: 20131226, end: 20140529
  13. ACULAR [Concomitant]
     Active Substance: KETOROLAC TROMETHAMINE
     Dosage: GTT OU
     Route: 061
     Dates: start: 20140520
  14. HYCET [Concomitant]
     Active Substance: ACETAMINOPHEN\HYDROCODONE BITARTRATE
     Indication: OBESITY SURGERY
  15. METFORMIN [Concomitant]
     Active Substance: METFORMIN HYDROCHLORIDE
     Route: 048
     Dates: start: 20130830, end: 20131101
  16. QSYMIA [Concomitant]
     Active Substance: PHENTERMINE HYDROCHLORIDE\TOPIRAMATE
     Route: 048
     Dates: start: 20140530, end: 20140717
  17. DUREZOL [Concomitant]
     Active Substance: DIFLUPREDNATE
     Indication: UVEITIS
     Dosage: GTT
     Route: 061
     Dates: start: 20120816, end: 20130103
  18. ACULAR [Concomitant]
     Active Substance: KETOROLAC TROMETHAMINE
     Indication: UVEITIS
     Dosage: GTT OS
     Route: 061
     Dates: start: 20140219, end: 20140501
  19. BARIATRIC ADVANTAGE [Concomitant]
     Indication: NUTRITIONAL SUPPLEMENTATION
     Route: 048
     Dates: start: 20140803
  20. GLIMEPIRIDE. [Concomitant]
     Active Substance: GLIMEPIRIDE
     Indication: TYPE 2 DIABETES MELLITUS
     Route: 048
     Dates: start: 201104, end: 201207
  21. QSYMIA [Concomitant]
     Active Substance: PHENTERMINE HYDROCHLORIDE\TOPIRAMATE
     Indication: UVEITIS
     Route: 048
     Dates: start: 20131015, end: 20131025
  22. ACULAR [Concomitant]
     Active Substance: KETOROLAC TROMETHAMINE
     Dosage: 1 GTT
     Route: 061
     Dates: start: 20141024
  23. PRILOSEC [Concomitant]
     Active Substance: OMEPRAZOLE MAGNESIUM
     Indication: GASTROOESOPHAGEAL REFLUX DISEASE
     Route: 048
     Dates: start: 20140803
  24. GLIMEPIRIDE. [Concomitant]
     Active Substance: GLIMEPIRIDE
     Route: 048
     Dates: start: 201207, end: 20130601
  25. DUREZOL [Concomitant]
     Active Substance: DIFLUPREDNATE
     Dosage: GTT
     Route: 061
     Dates: start: 20130104, end: 20140807
  26. DUREZOL [Concomitant]
     Active Substance: DIFLUPREDNATE
     Dosage: GTT
     Route: 061
     Dates: start: 20140808, end: 20140920
  27. DUREZOL [Concomitant]
     Active Substance: DIFLUPREDNATE
     Dosage: 1 GTT
     Route: 061
     Dates: start: 20141024
  28. ACULAR [Concomitant]
     Active Substance: KETOROLAC TROMETHAMINE
     Dosage: GTT OD
     Route: 061
     Dates: start: 20140219, end: 20140501
  29. CALCIUM [Concomitant]
     Active Substance: CALCIUM
     Indication: NUTRITIONAL SUPPLEMENTATION
     Route: 048
     Dates: start: 20140901
  30. GLIMEPIRIDE. [Concomitant]
     Active Substance: GLIMEPIRIDE
     Route: 048
     Dates: start: 20130602, end: 20140803
  31. LANTUS [Concomitant]
     Active Substance: INSULIN GLARGINE
     Route: 058
     Dates: start: 20131116, end: 20140228
  32. LANTUS [Concomitant]
     Active Substance: INSULIN GLARGINE
     Route: 058
     Dates: start: 20140301, end: 20140401
  33. LANTUS [Concomitant]
     Active Substance: INSULIN GLARGINE
     Route: 058
     Dates: start: 20140402, end: 20140731
  34. ACULAR [Concomitant]
     Active Substance: KETOROLAC TROMETHAMINE
     Dosage: 1 GTT
     Route: 061
     Dates: start: 20140926, end: 20141023

REACTIONS (1)
  - Nephrolithiasis [Not Recovered/Not Resolved]

NARRATIVE: CASE EVENT DATE: 20140919
